FAERS Safety Report 25929437 (Version 2)
Quarter: 2025Q4

REPORT INFORMATION
  Report Type: Report from Study
  Country: US (occurrence: US)
  Receive Date: 20251016
  Receipt Date: 20251113
  Transmission Date: 20260118
  Serious: Yes (Other)
  Sender: ABBVIE
  Company Number: US-ABBVIE-6501558

PATIENT
  Age: 62 Year
  Sex: Male

DRUGS (1)
  1. RINVOQ [Suspect]
     Active Substance: UPADACITINIB
     Indication: Rheumatoid arthritis
     Route: 048
     Dates: start: 20250805

REACTIONS (4)
  - Knee operation [Recovering/Resolving]
  - Inflammation [Not Recovered/Not Resolved]
  - Drug ineffective [Unknown]
  - Cartilage injury [Unknown]

NARRATIVE: CASE EVENT DATE: 20250101
